FAERS Safety Report 5789475-3 (Version None)
Quarter: 2008Q2

REPORT INFORMATION
  Report Type: 
  Country: None (occurrence: None)
  Receive Date: 20080623
  Receipt Date: 20080606
  Transmission Date: 20081010
  Serious: Yes (Hospitalization)
  Sender: FDA-Public Use
  Company Number: 2008AL005024

PATIENT
  Age: 53 Year
  Sex: Male
  Weight: 87.5442 kg

DRUGS (1)
  1. DIGOXIN [Suspect]
     Indication: ARRHYTHMIA
     Dosage: 0.125 MG, DAILY, PO
     Route: 048
     Dates: start: 19980101

REACTIONS (3)
  - ATRIAL FIBRILLATION [None]
  - DIZZINESS [None]
  - DYSPNOEA [None]
